FAERS Safety Report 11594991 (Version 4)
Quarter: 2015Q4

REPORT INFORMATION
  Report Type: Report from Study
  Country: DE (occurrence: DE)
  Receive Date: 20151005
  Receipt Date: 20151110
  Transmission Date: 20160304
  Serious: Yes (Hospitalization)
  Sender: FDA-Public Use
  Company Number: DE-ABBVIE-15P-062-1472575-00

PATIENT
  Age: 72 Year
  Sex: Female

DRUGS (7)
  1. INFLUENZA [Suspect]
     Active Substance: INFLUENZA VIRUS VACCINE
     Indication: PRODUCT USED FOR UNKNOWN INDICATION
     Route: 065
     Dates: start: 20150907, end: 20150907
  2. ASPIRIN PROTECT [Concomitant]
     Active Substance: ASPIRIN
     Indication: PRODUCT USED FOR UNKNOWN INDICATION
  3. MADOPAR [Concomitant]
     Active Substance: BENSERAZIDE HYDROCHLORIDE\LEVODOPA
     Indication: PRODUCT USED FOR UNKNOWN INDICATION
  4. DUODOPA [Suspect]
     Active Substance: CARBIDOPA\LEVODOPA
     Indication: PARKINSON^S DISEASE
     Dosage: MD 10.5ML, CRD 3ML/H, ED 1.5ML
     Route: 050
     Dates: start: 20150615
  5. DUODOPA [Suspect]
     Active Substance: CARBIDOPA\LEVODOPA
     Dosage: MD 12ML, 3.2ML/H 9PM - 7AM, 4.8ML 7AM - 9PM
     Route: 050
     Dates: start: 20150615
  6. DUODOPA [Suspect]
     Active Substance: CARBIDOPA\LEVODOPA
     Dosage: REDUCTION FROM 4.6ML/H TO 3.9ML/H (6AM TO 9PM)
     Route: 050
     Dates: start: 20150615
  7. PANTOPRAZOLE [Concomitant]
     Active Substance: PANTOPRAZOLE SODIUM
     Indication: PRODUCT USED FOR UNKNOWN INDICATION

REACTIONS (8)
  - Gait disturbance [Not Recovered/Not Resolved]
  - Gastrointestinal haemorrhage [Unknown]
  - Parkinson^s disease [Not Recovered/Not Resolved]
  - Tricuspid valve incompetence [Unknown]
  - Acute psychosis [Recovered/Resolved]
  - Urinary tract infection [Unknown]
  - Urosepsis [Unknown]
  - Anxiety [Recovered/Resolved]

NARRATIVE: CASE EVENT DATE: 201509
